FAERS Safety Report 21389300 (Version 3)
Quarter: 2022Q4

REPORT INFORMATION
  Report Type: Spontaneous
  Country: BR (occurrence: BR)
  Receive Date: 20220929
  Receipt Date: 20221022
  Transmission Date: 20230113
  Serious: Yes (Other)
  Sender: FDA-Public Use
  Company Number: BR-CELLTRION INC.-2022BR015652

PATIENT

DRUGS (5)
  1. INFLIXIMAB [Suspect]
     Active Substance: INFLIXIMAB
     Indication: Ankylosing spondylitis
     Dosage: ATTACK DOSE DILUTE 5 MG PER KG; WEEKS 0;2;6 AND MAINTENANCE DOSES WILL BE EVERY 8 WEEKS.
     Route: 042
  2. INFLIXIMAB [Suspect]
     Active Substance: INFLIXIMAB
     Indication: Crohn^s disease
  3. SULFASALAZINE [Concomitant]
     Active Substance: SULFASALAZINE
     Indication: Crohn^s disease
     Dosage: 6 PILLS PER DAY (START: 7 YEARS AGO)
     Route: 048
  4. MESALAMINE [Concomitant]
     Active Substance: MESALAMINE
     Indication: Crohn^s disease
     Dosage: 1 SUPOSITORY PER DAY (START: 7 YEARS AGO)
     Route: 048
  5. CARVEDILOL [Concomitant]
     Active Substance: CARVEDILOL
     Dosage: 1 PILL PER DAY (START: 3 YEARS AGO)
     Route: 048

REACTIONS (11)
  - Uveitis [Not Recovered/Not Resolved]
  - Spinal disorder [Not Recovered/Not Resolved]
  - COVID-19 [Unknown]
  - Pain [Not Recovered/Not Resolved]
  - Migraine [Not Recovered/Not Resolved]
  - Trismus [Not Recovered/Not Resolved]
  - Gait inability [Not Recovered/Not Resolved]
  - Musculoskeletal stiffness [Not Recovered/Not Resolved]
  - Joint swelling [Not Recovered/Not Resolved]
  - Intentional dose omission [Unknown]
  - Therapy interrupted [Unknown]

NARRATIVE: CASE EVENT DATE: 20220720
